FAERS Safety Report 7884679-8 (Version None)
Quarter: 2011Q4

REPORT INFORMATION
  Report Type: 
  Country: None (occurrence: None)
  Receive Date: 20111102
  Receipt Date: 20111027
  Transmission Date: 20120403
  Serious: Yes (Death)
  Sender: FDA-Public Use
  Company Number: GB-PFIZER INC-2011229389

PATIENT

DRUGS (1)
  1. TIGECYCLINE [Suspect]
     Indication: PNEUMONIA

REACTIONS (2)
  - DRUG INEFFECTIVE [None]
  - DEATH [None]
